FAERS Safety Report 18478905 (Version 1)
Quarter: 2020Q4

REPORT INFORMATION
  Report Type: Spontaneous
  Country: GB (occurrence: GB)
  Receive Date: 20201109
  Receipt Date: 20201109
  Transmission Date: 20210114
  Serious: Yes (Hospitalization)
  Sender: FDA-Public Use
  Company Number: GB-ACCORD-207705

PATIENT
  Age: 67 Year
  Sex: Female
  Weight: 60.45 kg

DRUGS (10)
  1. CLOPIDOGREL [Concomitant]
     Active Substance: CLOPIDOGREL BISULFATE
     Dosage: EVERY MORNING
     Route: 048
  2. SODIUM BICARBONATE. [Concomitant]
     Active Substance: SODIUM BICARBONATE
     Dosage: AT 8AM AND 10PM
     Route: 048
  3. NOVORAPID [Concomitant]
     Active Substance: INSULIN ASPART
     Dosage: 100UNITS/1ML. 3ML FLEXPEN. AS PER BLOOD MEASUREMENT^S THREE TIMES A DAY WITH FOOD
     Route: 058
  4. FUROSEMIDE. [Concomitant]
     Active Substance: FUROSEMIDE
     Dosage: EVERY MORNING
     Route: 048
  5. LISINOPRIL. [Suspect]
     Active Substance: LISINOPRIL
     Indication: HYPERTENSION
     Route: 048
     Dates: end: 20201007
  6. SERTRALINE [Concomitant]
     Active Substance: SERTRALINE HYDROCHLORIDE
     Dosage: EVERY MORNING
     Route: 048
  7. LEVOTHYROXINE. [Concomitant]
     Active Substance: LEVOTHYROXINE
     Dosage: AT 6AM
     Route: 048
  8. TRESIBA [Concomitant]
     Active Substance: INSULIN DEGLUDEC
     Dosage: 100 UNITS/1 ML 3ML FLEXTOUCH PEN. AS PER BLOOD MEASUREMENT^S EVERY MORNING
     Route: 058
  9. AMOXICILLIN SODIUM/CLAVULANATE POTASSIUM [Concomitant]
     Active Substance: AMOXICILLIN\CLAVULANATE POTASSIUM
     Dosage: 8AM,12,10PM
     Route: 048
  10. ATORVASTATIN [Concomitant]
     Active Substance: ATORVASTATIN
     Dosage: EVERY MORNING
     Route: 048

REACTIONS (2)
  - Acute kidney injury [Recovering/Resolving]
  - Pneumonia [Unknown]

NARRATIVE: CASE EVENT DATE: 20201007
